FAERS Safety Report 4869559-4 (Version None)
Quarter: 2005Q4

REPORT INFORMATION
  Report Type: 
  Country: None (occurrence: None)
  Receive Date: 20051223
  Receipt Date: 20051020
  Transmission Date: 20060501
  Serious: Yes (Other)
  Sender: FDA-Public Use
  Company Number: 006#1#2005-00047

PATIENT
  Age: 65 Year
  Sex: Male

DRUGS (9)
  1. EDEX [Suspect]
     Dosage: 20 MCG (20 MCG/ML 3 IN 1  MONTH(S)),INTRAVENOUS
     Route: 042
     Dates: start: 19980101, end: 20050101
  2. . [Concomitant]
  3. . [Concomitant]
  4. . [Concomitant]
  5. . [Concomitant]
  6. ACTOS [Concomitant]
  7. AMARYL [Concomitant]
  8. AMLODIPINE BESYLATE [Concomitant]
  9. ENALAPRIL MALEATE AND HYDROCHLOROTHIAZIDE [Concomitant]

REACTIONS (3)
  - ABNORMAL BEHAVIOUR [None]
  - INCOHERENT [None]
  - RETROGRADE AMNESIA [None]
